FAERS Safety Report 6203004-1 (Version None)
Quarter: 2009Q2

REPORT INFORMATION
  Report Type: 
  Country: None (occurrence: None)
  Receive Date: 20090521
  Receipt Date: 20090507
  Transmission Date: 20091009
  Serious: Yes (Other)
  Sender: FDA-Public Use
  Company Number: 2009-01869

PATIENT
  Age: 65 Year
  Sex: Male

DRUGS (7)
  1. VELCADE [Suspect]
     Indication: MULTIPLE MYELOMA
     Dosage: 3.5 MG
     Dates: start: 20081001
  2. TEGRETOL [Suspect]
     Indication: EPILEPSY
  3. SELOKEEN ZOC (METOPROLOL SUCCINATE) [Concomitant]
  4. MORPHINE SULFATE INJ [Concomitant]
  5. INNOHEP [Concomitant]
  6. LANOXIN [Concomitant]
  7. FOLIC ACID [Concomitant]

REACTIONS (2)
  - DRUG INTERACTION [None]
  - EPILEPSY [None]
